FAERS Safety Report 5078299-0 (Version None)
Quarter: 2006Q3

REPORT INFORMATION
  Report Type: 
  Country: None (occurrence: None)
  Receive Date: 20060811
  Receipt Date: 20060727
  Transmission Date: 20061208
  Serious: Yes (Death, Hospitalization)
  Sender: FDA-Public Use
  Company Number: FR-MERCK-0607FRA00064

PATIENT
  Age: 47 Year
  Sex: Male

DRUGS (7)
  1. ZOCOR [Suspect]
     Indication: HYPERCHOLESTEROLAEMIA
     Route: 048
     Dates: start: 20010101, end: 20060620
  2. CLOPIDOGREL BISULFATE [Suspect]
     Indication: THROMBOSIS PROPHYLAXIS
     Route: 048
     Dates: start: 20010101, end: 20060703
  3. PENTOXIFYLLINE [Concomitant]
     Route: 048
     Dates: end: 20060710
  4. ZOLPIDEM TARTRATE [Concomitant]
     Indication: INSOMNIA
     Route: 048
     Dates: end: 20060710
  5. MEPROBAMATE [Concomitant]
     Indication: ANXIETY
     Route: 048
     Dates: end: 20060703
  6. HYDROXYZINE HYDROCHLORIDE [Concomitant]
     Indication: ANXIETY
     Route: 048
     Dates: end: 20060710
  7. INDAPAMIDE AND PERINDOPRIL ERBUMINE [Concomitant]
     Indication: HYPERTENSION
     Route: 048
     Dates: end: 20060710

REACTIONS (2)
  - DERMATITIS BULLOUS [None]
  - INTESTINAL INFARCTION [None]
